FAERS Safety Report 23539443 (Version 5)
Quarter: 2024Q2

REPORT INFORMATION
  Report Type: Report from Study
  Country: US (occurrence: US)
  Receive Date: 20240219
  Receipt Date: 20240628
  Transmission Date: 20240715
  Serious: No
  Sender: FDA-Public Use
  Company Number: US-SA-SAC20240213000900

PATIENT
  Age: 20 Year
  Sex: Female

DRUGS (6)
  1. DUPILUMAB [Suspect]
     Active Substance: DUPILUMAB
     Indication: Chronic rhinosinusitis with nasal polyps
     Dosage: 300 MG, QOW
     Route: 058
     Dates: start: 20240117
  2. DUPILUMAB [Suspect]
     Active Substance: DUPILUMAB
     Indication: Asthma
  3. DUPILUMAB [Suspect]
     Active Substance: DUPILUMAB
     Indication: Eczema
  4. DUPILUMAB [Suspect]
     Active Substance: DUPILUMAB
     Indication: Urticaria
  5. DUPILUMAB [Suspect]
     Active Substance: DUPILUMAB
     Indication: Food allergy
  6. XOLAIR [Suspect]
     Active Substance: OMALIZUMAB

REACTIONS (14)
  - Injection site pain [Unknown]
  - Injection site swelling [Recovered/Resolved]
  - Injection site pruritus [Recovered/Resolved]
  - Injection site erythema [Recovered/Resolved]
  - Nasal congestion [Unknown]
  - Nasal obstruction [Unknown]
  - Pain in extremity [Unknown]
  - Anosmia [Unknown]
  - Sunburn [Unknown]
  - Skin discolouration [Unknown]
  - Pruritus [Unknown]
  - Skin burning sensation [Recovered/Resolved]
  - Eye pruritus [Unknown]
  - Product use in unapproved indication [Unknown]

NARRATIVE: CASE EVENT DATE: 20240101
